FAERS Safety Report 4348644-X (Version None)
Quarter: 2004Q2

REPORT INFORMATION
  Report Type: 
  Country: None (occurrence: None)
  Receive Date: 20040423
  Receipt Date: 20040415
  Transmission Date: 20050107
  Serious: Yes (Hospitalization)
  Sender: FDA-Public Use
  Company Number: JP-JNJFOC-20040404127

PATIENT
  Age: 51 Year
  Sex: Female

DRUGS (5)
  1. LEVOFLOXACIN [Suspect]
     Indication: BRONCHITIS
     Dosage: 100 M G, 2 IN 1 DAY, ORAL
     Route: 048
     Dates: start: 20040323, end: 20040327
  2. NORVASC [Suspect]
     Dosage: ORAL
     Route: 048
  3. MUCOSTA (REBAMIPIDE) [Suspect]
     Dosage: ORAL
     Route: 048
  4. ENALAPRIL MALEATE [Suspect]
     Dosage: ORAL
     Route: 048
  5. PROTECADIN (PROTECTON) [Suspect]
     Dosage: ORAL
     Route: 048

REACTIONS (6)
  - ALANINE AMINOTRANSFERASE INCREASED [None]
  - ARTHRALGIA [None]
  - ASPARTATE AMINOTRANSFERASE INCREASED [None]
  - BLOOD CREATINE PHOSPHOKINASE INCREASED [None]
  - BLOOD LACTATE DEHYDROGENASE INCREASED [None]
  - MYALGIA [None]
